FAERS Safety Report 4303950-X (Version None)
Quarter: 2004Q1

REPORT INFORMATION
  Report Type: 
  Country: None (occurrence: None)
  Receive Date: 20040225
  Receipt Date: 20040213
  Transmission Date: 20041129
  Serious: Yes (Other)
  Sender: FDA-Public Use
  Company Number: PL-ROCHE-359016

PATIENT
  Age: 21 Year
  Sex: Female
  Weight: 61 kg

DRUGS (2)
  1. ROACCUTANE [Suspect]
     Indication: ACNE
     Route: 048
     Dates: start: 20030315, end: 20030415
  2. ROACCUTANE [Suspect]
     Route: 048
     Dates: start: 20021015, end: 20021231

REACTIONS (4)
  - ARTHRITIS [None]
  - FISTULA [None]
  - HIRSUTISM [None]
  - KERATOCONJUNCTIVITIS SICCA [None]
